FAERS Safety Report 8877751 (Version 1)
Quarter: 2012Q4

REPORT INFORMATION
  Report Type: 
  Country: US (occurrence: US)
  Receive Date: 20121025
  Receipt Date: 20121025
  Transmission Date: 20130627
  Serious: No
  Sender: FDA-Public Use
  Company Number: US-AMGEN-USASP2012020221

PATIENT
  Sex: Female
  Weight: 62.59 kg

DRUGS (8)
  1. ENBREL [Suspect]
     Indication: PRODUCT USED FOR UNKNOWN INDICATION
     Dosage: 50 mg, qwk
     Route: 058
  2. SYNTHROID [Concomitant]
     Dosage: 125 mug, UNK
  3. PLAQUENIL                          /00072603/ [Concomitant]
     Dosage: 200 mg, UNK
  4. MELOXICAM [Concomitant]
     Dosage: 15 mg, UNK
  5. LOVENOX [Concomitant]
  6. FISH OIL [Concomitant]
     Dosage: 1000 mg, UNK
  7. CITRACAL PLUS [Concomitant]
  8. COSAMIN [Concomitant]

REACTIONS (1)
  - Skin disorder [Unknown]
